FAERS Safety Report 7245923-3 (Version None)
Quarter: 2011Q1

REPORT INFORMATION
  Report Type: 
  Country: None (occurrence: None)
  Receive Date: 20110126
  Receipt Date: 20110121
  Transmission Date: 20110831
  Serious: Yes (Other)
  Sender: FDA-Public Use
  Company Number: DE-ABBOTT-11P-062-0698530-00

PATIENT
  Age: 35 Year
  Sex: Male
  Weight: 115 kg

DRUGS (2)
  1. HUMIRA [Suspect]
     Indication: ANKYLOSING SPONDYLITIS
     Route: 058
     Dates: start: 20070601
  2. MELOXICAM [Concomitant]
     Indication: PRODUCT USED FOR UNKNOWN INDICATION
     Dates: start: 20070601

REACTIONS (3)
  - THORACIC VERTEBRAL FRACTURE [None]
  - ROAD TRAFFIC ACCIDENT [None]
  - BACK DISORDER [None]
